FAERS Safety Report 13822514 (Version 1)
Quarter: 2017Q3

REPORT INFORMATION
  Report Type: Spontaneous
  Country: US (occurrence: US)
  Receive Date: 20170801
  Receipt Date: 20170801
  Transmission Date: 20171127
  Serious: Yes (Other)
  Sender: FDA-Public Use
  Company Number: US-THE MENTHOLATUM COMPANY-2024029

PATIENT
  Age: 12 Year
  Sex: Female
  Weight: 44.09 kg

DRUGS (1)
  1. OXY CLEANSING PADS DAILY DEFENSE [Suspect]
     Active Substance: SALICYLIC ACID
     Route: 061
     Dates: start: 20170717, end: 20170717

REACTIONS (5)
  - Rash [Not Recovered/Not Resolved]
  - Rash pruritic [None]
  - Rash erythematous [None]
  - Rash vesicular [None]
  - Rash [None]

NARRATIVE: CASE EVENT DATE: 20170718
